FAERS Safety Report 4414299-9 (Version None)
Quarter: 2004Q3

REPORT INFORMATION
  Report Type: 
  Country: None (occurrence: None)
  Receive Date: 20040729
  Receipt Date: 20040629
  Transmission Date: 20050211
  Serious: Yes (Hospitalization)
  Sender: FDA-Public Use
  Company Number: RB-791-2004

PATIENT
  Age: 33 Year
  Sex: Male
  Weight: 68.0396 kg

DRUGS (6)
  1. SUBOXONE [Suspect]
     Indication: DRUG DEPENDENCE
     Dosage: 8 MG DAILY
     Dates: start: 20020115, end: 20020117
  2. SUBOXONE [Suspect]
     Indication: DRUG DEPENDENCE
  3. IBUPROFEN [Concomitant]
  4. THORAZINE [Concomitant]
  5. ROBAXIN [Concomitant]
  6. BENTYL [Concomitant]

REACTIONS (2)
  - HICCUPS [None]
  - MALLORY-WEISS SYNDROME [None]
